FAERS Safety Report 9508471 (Version 1)
Quarter: 2013Q3

REPORT INFORMATION
  Report Type: Spontaneous
  Country: SA (occurrence: None)
  Receive Date: 20130905
  Receipt Date: 20130905
  Transmission Date: 20140515
  Serious: Yes (Hospitalization)
  Sender: FDA-Public Use
  Company Number: SA-012853

PATIENT
  Age: 30 Year
  Sex: Female

DRUGS (3)
  1. CHORIONIC GONADOTROPIN [Suspect]
     Indication: INFERTILITY
     Dosage: TO UNKNOWN?
  2. MENOTROPINS [Suspect]
     Indication: INFERTILITY
  3. CLOMIFENE CITRATE [Suspect]
     Indication: INFERTILITY
     Dosage: DURING 5 DAYS FROM THE SECOND DAY OF THE MENSTRUAL CYCLE
     Route: 048

REACTIONS (4)
  - Ovarian hyperstimulation syndrome [None]
  - Pleural effusion [None]
  - Multiple pregnancy [None]
  - Abortion spontaneous [None]
